FAERS Safety Report 5245953-7 (Version None)
Quarter: 2007Q1

REPORT INFORMATION
  Report Type: 
  Country: None (occurrence: None)
  Receive Date: 20070220
  Receipt Date: 20070207
  Transmission Date: 20070707
  Serious: Yes (Hospitalization)
  Sender: FDA-Public Use
  Company Number: GXKR2007GB01057

PATIENT
  Age: 61 Year
  Sex: Female

DRUGS (9)
  1. OMEPRAZOLE [Suspect]
     Dosage: 20 MG, BID, ORAL
     Route: 048
     Dates: start: 20060417, end: 20060425
  2. PANTOPRAZOLE SODIUM [Suspect]
     Dosage: UNK, UNK, INTRAVENOUS
     Route: 042
     Dates: start: 20060414, end: 20060417
  3. ATENOLOL [Concomitant]
  4. CLARITHROMYCIN [Concomitant]
  5. HEPARIN [Concomitant]
  6. LACIDIPINE (LACIDIPINE) [Concomitant]
  7. LEVOTHYROXINE SODIUM [Concomitant]
  8. METRONIDAZOLE [Concomitant]
  9. WARFARIN SODIUM [Concomitant]

REACTIONS (1)
  - NEPHRITIS INTERSTITIAL [None]
